FAERS Safety Report 7729274-6 (Version None)
Quarter: 2011Q3

REPORT INFORMATION
  Report Type: 
  Country: None (occurrence: None)
  Receive Date: 20110906
  Receipt Date: 20110902
  Transmission Date: 20111222
  Serious: Yes (Other)
  Sender: FDA-Public Use
  Company Number: US-PFIZER INC-2011206081

PATIENT
  Sex: Male
  Weight: 65.76 kg

DRUGS (2)
  1. CHANTIX [Suspect]
     Indication: SMOKING CESSATION THERAPY
     Dosage: 0.5 MG, 1X/DAY
     Route: 048
     Dates: start: 20110326, end: 20110301
  2. CHANTIX [Suspect]
     Dosage: 0.5 MG, UNK
     Route: 048
     Dates: start: 20110301, end: 20110331

REACTIONS (6)
  - DIZZINESS [None]
  - SUICIDAL BEHAVIOUR [None]
  - DEPRESSED MOOD [None]
  - MALAISE [None]
  - VOMITING [None]
  - HEADACHE [None]
